FAERS Safety Report 6584188-2 (Version None)
Quarter: 2010Q1

REPORT INFORMATION
  Report Type: 
  Country: None (occurrence: None)
  Receive Date: 20100216
  Receipt Date: 20100112
  Transmission Date: 20100710
  Serious: No
  Sender: FDA-Public Use
  Company Number: US-ABBOTT-10P-163-0619459-00

PATIENT
  Sex: Male
  Weight: 81.72 kg

DRUGS (15)
  1. SIMCOR [Suspect]
     Indication: BLOOD TRIGLYCERIDES ABNORMAL
     Dosage: 500/20
     Dates: start: 20081001, end: 20090101
  2. SIMCOR [Suspect]
     Dates: start: 20090101, end: 20090701
  3. SIMCOR [Suspect]
     Dosage: 1000/20
     Dates: start: 20091201, end: 20091201
  4. METFORMIN HCL [Concomitant]
     Indication: DRUG USE FOR UNKNOWN INDICATION
     Dates: start: 20090401
  5. LOMICTAL [Concomitant]
     Indication: DRUG USE FOR UNKNOWN INDICATION
  6. CLINDAMYCIN [Concomitant]
     Indication: DRUG USE FOR UNKNOWN INDICATION
     Dates: start: 20090718
  7. CLONAZEPAM [Concomitant]
     Indication: DRUG USE FOR UNKNOWN INDICATION
  8. MELOXICAM [Concomitant]
     Indication: DRUG USE FOR UNKNOWN INDICATION
  9. NITROSTAT [Concomitant]
     Indication: DRUG USE FOR UNKNOWN INDICATION
  10. AMOXICILLIN [Concomitant]
     Indication: DRUG USE FOR UNKNOWN INDICATION
     Dates: start: 20091216
  11. METOPROLOL TARTRATE [Concomitant]
     Indication: DRUG USE FOR UNKNOWN INDICATION
  12. HYDROCODONE [Concomitant]
     Indication: DRUG USE FOR UNKNOWN INDICATION
  13. DARVOCET-N 100 [Concomitant]
     Indication: DRUG USE FOR UNKNOWN INDICATION
  14. LEVAQUIN [Concomitant]
     Indication: DRUG USE FOR UNKNOWN INDICATION
  15. CEFUROXIME [Concomitant]
     Indication: DRUG USE FOR UNKNOWN INDICATION
     Dates: start: 20090615

REACTIONS (5)
  - ACNE [None]
  - BLOOD GLUCOSE INCREASED [None]
  - DERMAL CYST [None]
  - FLUSHING [None]
  - PENILE EXFOLIATION [None]
